FAERS Safety Report 23718368 (Version 2)
Quarter: 2024Q2

REPORT INFORMATION
  Report Type: Spontaneous
  Country: ES (occurrence: ES)
  Receive Date: 20240408
  Receipt Date: 20240430
  Transmission Date: 20240715
  Serious: Yes (Hospitalization)
  Sender: FDA-Public Use
  Company Number: ES-BAYER-2024A033843

PATIENT
  Age: 76 Year
  Sex: Male

DRUGS (4)
  1. DOCETAXEL [Interacting]
     Active Substance: DOCETAXEL\DOCETAXEL ANHYDROUS
     Dosage: UNK
     Dates: start: 20240109
  2. NUBEQA [Suspect]
     Active Substance: DAROLUTAMIDE
     Indication: Hormone-dependent prostate cancer
     Dosage: 300 MG, UNK
     Dates: start: 20240111
  3. EDOXABAN [Interacting]
     Active Substance: EDOXABAN
     Dosage: UNK
     Dates: start: 20240125, end: 20240207
  4. APIXABAN [Concomitant]
     Active Substance: APIXABAN
     Dosage: UNK
     Dates: start: 20240207

REACTIONS (3)
  - Epistaxis [Recovered/Resolved]
  - Drug interaction [Unknown]
  - Epistaxis [Recovered/Resolved]

NARRATIVE: CASE EVENT DATE: 20240122
